FAERS Safety Report 8363780-9 (Version None)
Quarter: 2012Q1

REPORT INFORMATION
  Report Type: 
  Country: None (occurrence: None)
  Receive Date: 20120323
  Receipt Date: 20111215
  Transmission Date: 20120608
  Serious: Yes (Hospitalization, Other)
  Sender: FDA-Public Use
  Company Number: 163-21880-11113297

PATIENT
  Age: 65 Year
  Sex: Male

DRUGS (25)
  1. FOLIC ACID [Concomitant]
  2. FLU VACCINE (VACCINES) [Concomitant]
  3. MIRALAX [Concomitant]
  4. PNEUMOVAX 23 [Concomitant]
  5. REVLIMID [Suspect]
     Indication: MULTIPLE MYELOMA
     Dosage: 25 MG, 1 IN 1 D, PO, 25 MG, PO
     Route: 048
     Dates: start: 20111122
  6. REVLIMID [Suspect]
     Indication: MULTIPLE MYELOMA
     Dosage: 25 MG, 1 IN 1 D, PO, 25 MG, PO
     Route: 048
     Dates: start: 20110913, end: 20111031
  7. MULTIVITAMIN [Concomitant]
  8. POTASSIUM CHLORIDE [Concomitant]
  9. MAGNESIUM OXIDE (MAGNESIUM OXIDE) [Concomitant]
  10. MICROZIDE [Concomitant]
  11. REMERON [Concomitant]
  12. POTASSIUM CHLORIDE [Concomitant]
  13. ABILIFY [Concomitant]
  14. HEPARIN SODIUM [Concomitant]
  15. MYCOSTATIN [Concomitant]
  16. CELEXA [Concomitant]
  17. HYDROCHLOROTHIAZIDE [Concomitant]
  18. COUMADIN [Concomitant]
  19. LOPRESSOR [Concomitant]
  20. MIRTAZAPINE [Concomitant]
  21. THIAMINE HCL [Concomitant]
  22. PROTONIX [Concomitant]
  23. NORVASC [Concomitant]
  24. ZANAFLEX [Concomitant]
  25. MAGNESIUM SULFATE [Concomitant]

REACTIONS (5)
  - DIARRHOEA [None]
  - PANCYTOPENIA [None]
  - CONSTIPATION [None]
  - VOMITING [None]
  - ABDOMINAL PAIN [None]
